FAERS Safety Report 8472746-X (Version None)
Quarter: 2012Q2

REPORT INFORMATION
  Report Type: 
  Country: None (occurrence: None)
  Receive Date: 20120627
  Receipt Date: 20120619
  Transmission Date: 20120825
  Serious: Yes (Other)
  Sender: FDA-Public Use
  Company Number: US-ABBOTT-11P-163-0878479-00

PATIENT
  Age: 38 Year
  Sex: Female

DRUGS (5)
  1. CLONAZEPAM [Concomitant]
     Indication: INSOMNIA
     Dosage: 2-4MG EVERY NIGHT
  2. HUMIRA [Suspect]
     Indication: RHEUMATOID ARTHRITIS
     Dates: start: 20090201, end: 20110926
  3. CIMZIA [Suspect]
     Indication: RHEUMATOID ARTHRITIS
     Dates: start: 20111010, end: 20111010
  4. HUMIRA [Suspect]
     Indication: CROHN'S DISEASE
  5. SEROQUEL [Concomitant]
     Indication: INSOMNIA
     Dosage: 100MG-200MG EVERY NIGHT

REACTIONS (6)
  - GRAND MAL CONVULSION [None]
  - DEMYELINATION [None]
  - EPILEPSY [None]
  - CENTRAL NERVOUS SYSTEM LESION [None]
  - ARTHRALGIA [None]
  - ARRHYTHMIA [None]
